FAERS Safety Report 10505641 (Version 1)
Quarter: 2014Q4

REPORT INFORMATION
  Report Type: Spontaneous
  Country: SE (occurrence: SE)
  Receive Date: 20141008
  Receipt Date: 20141008
  Transmission Date: 20150528
  Serious: Yes (Other)
  Sender: FDA-Public Use
  Company Number: SE-PFIZER INC-2014275489

PATIENT
  Age: 67 Year
  Sex: Female

DRUGS (1)
  1. DOLCONTIN [Suspect]
     Active Substance: MORPHINE
     Dosage: UNK
     Dates: start: 20140826, end: 20140926

REACTIONS (1)
  - Hyperhidrosis [Not Recovered/Not Resolved]

NARRATIVE: CASE EVENT DATE: 201408
